FAERS Safety Report 4907916-8 (Version None)
Quarter: 2006Q1

REPORT INFORMATION
  Report Type: 
  Country: None (occurrence: None)
  Receive Date: 20060210
  Receipt Date: 20060201
  Transmission Date: 20060701
  Serious: Yes (Hospitalization)
  Sender: FDA-Public Use
  Company Number: BE-BRISTOL-MYERS SQUIBB COMPANY-13266622

PATIENT
  Age: 66 Year
  Sex: Male
  Weight: 87 kg

DRUGS (4)
  1. REYATAZ [Suspect]
     Indication: HIV INFECTION
     Route: 048
     Dates: start: 20040317
  2. RITONAVIR [Concomitant]
     Route: 048
     Dates: start: 20040317
  3. LAMIVUDINE [Concomitant]
     Route: 048
     Dates: start: 20040317
  4. TENOFOVIR [Concomitant]
     Route: 048
     Dates: start: 20040317

REACTIONS (1)
  - CHOLECYSTITIS [None]
